FAERS Safety Report 8863168 (Version 1)
Quarter: 2012Q4

REPORT INFORMATION
  Report Type: 
  Country: JP (occurrence: JP)
  Receive Date: 20121026
  Receipt Date: 20121026
  Transmission Date: 20130627
  Serious: Yes (Hospitalization, Other)
  Sender: FDA-Public Use
  Company Number: JP-BRISTOL-MYERS SQUIBB COMPANY-17041377

PATIENT
  Age: 58 Year
  Sex: Male

DRUGS (5)
  1. STREPTOMYCIN [Suspect]
     Indication: PULMONARY TUBERCULOSIS
  2. ISONIAZID [Suspect]
     Indication: TUBERCULOSIS
  3. ETHAMBUTOL [Suspect]
     Indication: TUBERCULOSIS
  4. RIFAMPICIN [Suspect]
     Indication: TUBERCULOSIS
  5. PYRAZINAMIDE [Concomitant]
     Indication: TUBERCULOSIS

REACTIONS (1)
  - Thrombocytopenia [Recovered/Resolved]
